FAERS Safety Report 16987822 (Version 1)
Quarter: 2019Q4

REPORT INFORMATION
  Report Type: Spontaneous
  Country: ES (occurrence: ES)
  Receive Date: 20191104
  Receipt Date: 20191104
  Transmission Date: 20200122
  Serious: Yes (Hospitalization)
  Sender: FDA-Public Use
  Company Number: ES-009507513-1910ESP015547

PATIENT
  Age: 18 Year
  Sex: Female
  Weight: 45 kg

DRUGS (1)
  1. NUVARING [Suspect]
     Active Substance: ETHINYL ESTRADIOL\ETONOGESTREL
     Indication: HORMONAL CONTRACEPTION
     Dosage: 0.120 MG/0.015 MG;RING INSIDE FOR 3 WEEKS AND ONE WEEK OUTSIDE FOR MENSTRUAL PERIOD
     Route: 067
     Dates: start: 20171206, end: 201811

REACTIONS (3)
  - Hyperprolactinaemia [Recovering/Resolving]
  - Polycystic ovaries [Not Recovered/Not Resolved]
  - Galactorrhoea [Recovered/Resolved]

NARRATIVE: CASE EVENT DATE: 20180321
